FAERS Safety Report 5479087-3 (Version None)
Quarter: 2007Q4

REPORT INFORMATION
  Report Type: 
  Country: None (occurrence: None)
  Receive Date: 20071006
  Receipt Date: 20070926
  Transmission Date: 20080405
  Serious: Yes (Hospitalization, Other)
  Sender: FDA-Public Use
  Company Number: MX-PFIZER INC-2007081495

PATIENT
  Sex: Male

DRUGS (4)
  1. LIPITOR [Suspect]
     Indication: HYPERCHOLESTEROLAEMIA
     Route: 048
     Dates: start: 20070822, end: 20070911
  2. EXUBERA [Suspect]
     Indication: DIABETES MELLITUS
     Route: 055
  3. BI-EUGLUCON [Concomitant]
     Route: 048
  4. AMOXICILIN [Concomitant]
     Route: 048

REACTIONS (7)
  - BLOOD CREATININE INCREASED [None]
  - BLOOD GLUCOSE INCREASED [None]
  - BLOOD TRIGLYCERIDES INCREASED [None]
  - BLOOD UREA INCREASED [None]
  - CREATININE RENAL CLEARANCE DECREASED [None]
  - GENERALISED OEDEMA [None]
  - RENAL DISORDER [None]
